FAERS Safety Report 7406749-0 (Version None)
Quarter: 2011Q2

REPORT INFORMATION
  Report Type: 
  Country: None (occurrence: None)
  Receive Date: 20110411
  Receipt Date: 20110404
  Transmission Date: 20111010
  Serious: Yes (Death, Other)
  Sender: FDA-Public Use
  Company Number: US-PFIZER INC-2011031346

PATIENT
  Sex: Male

DRUGS (5)
  1. PRISTIQ [Suspect]
     Indication: BIPOLAR DISORDER
     Dosage: 50 UNK, IN THE MORNING
     Dates: start: 20100801
  2. AMBIEN [Suspect]
     Indication: INSOMNIA
  3. PAXIL [Suspect]
  4. AMBIEN [Suspect]
     Indication: BIPOLAR DISORDER
     Dosage: 10 MG, NIGHTLY AS NEEDED
     Route: 048
     Dates: start: 20040101
  5. LAMICTAL [Suspect]
     Indication: BIPOLAR DISORDER
     Dosage: 200 MG, 1X/DAY

REACTIONS (5)
  - COMPLETED SUICIDE [None]
  - CONFUSIONAL STATE [None]
  - ANXIETY [None]
  - ACCIDENTAL OVERDOSE [None]
  - MEMORY IMPAIRMENT [None]
